FAERS Safety Report 22147230 (Version 1)
Quarter: 2023Q1

REPORT INFORMATION
  Report Type: Spontaneous
  Country: US (occurrence: None)
  Receive Date: 20230327
  Receipt Date: 20230327
  Transmission Date: 20230418
  Serious: No
  Sender: FDA-Public Use
  Company Number: None

PATIENT
  Age: 88 Year
  Sex: Female
  Weight: 54.43 kg

DRUGS (1)
  1. TIZANIDINE HYDROCHLORIDE [Suspect]
     Active Substance: TIZANIDINE HYDROCHLORIDE
     Indication: Muscle relaxant therapy
     Dosage: FREQUENCY : DAILY;?
     Route: 048
     Dates: start: 20230117, end: 20230118

REACTIONS (2)
  - Nightmare [None]
  - Hallucination [None]

NARRATIVE: CASE EVENT DATE: 20230117
